FAERS Safety Report 8199495-X (Version None)
Quarter: 2012Q1

REPORT INFORMATION
  Report Type: 
  Country: None (occurrence: None)
  Receive Date: 20120309
  Receipt Date: 20120228
  Transmission Date: 20120608
  Serious: Yes (Death, Other)
  Sender: FDA-Public Use
  Company Number: JP-AMGEN-JPNCT2011047715

PATIENT
  Age: 73 Year
  Sex: Male
  Weight: 53 kg

DRUGS (20)
  1. AMLODIPINE [Concomitant]
     Indication: HYPERTENSION
     Route: 048
     Dates: start: 20100702, end: 20110517
  2. PANITUMUMAB [Suspect]
     Dosage: 6 MG/KG, Q2WK
     Route: 041
     Dates: start: 20101222, end: 20110106
  3. FLUOROURACIL [Concomitant]
     Route: 040
     Dates: start: 20110217, end: 20110304
  4. PANITUMUMAB [Suspect]
     Dosage: 6 MG/KG, Q2WK
     Route: 041
     Dates: start: 20110203, end: 20110303
  5. TOPOTECAN [Suspect]
     Indication: COLORECTAL CANCER
     Route: 041
     Dates: start: 20110217, end: 20110304
  6. LEVOLEUCOVORIN CALCIUM [Concomitant]
     Indication: COLORECTAL CANCER
     Route: 041
     Dates: start: 20100810, end: 20110204
  7. SEROTONE [Concomitant]
     Indication: PROPHYLAXIS OF NAUSEA AND VOMITING
     Route: 042
     Dates: start: 20100708, end: 20101104
  8. PANITUMUMAB [Suspect]
     Dosage: 6 MG/KG, Q2WK
     Route: 041
     Dates: start: 20101130, end: 20101130
  9. FLUOROURACIL [Concomitant]
     Route: 041
     Dates: start: 20100810, end: 20110204
  10. PROCHLORPERAZINE [Concomitant]
     Dosage: UNK
     Route: 048
  11. DECADRON [Concomitant]
     Dosage: UNK
     Route: 042
  12. OXALIPLATIN [Concomitant]
     Indication: COLORECTAL CANCER
     Route: 041
     Dates: start: 20100810, end: 20110204
  13. FLUOROURACIL [Concomitant]
     Indication: COLORECTAL CANCER
     Route: 040
     Dates: start: 20100810, end: 20110204
  14. FLUOROURACIL [Concomitant]
     Route: 041
     Dates: start: 20110217, end: 20110304
  15. LEVOLEUCOVORIN CALCIUM [Concomitant]
     Route: 041
     Dates: start: 20110217, end: 20110304
  16. OMEPRAZOLE [Concomitant]
     Indication: PROPHYLAXIS AGAINST GASTROINTESTINAL ULCER
     Route: 048
     Dates: start: 20100706, end: 20101209
  17. NAPROXEN [Concomitant]
     Indication: PAIN
     Route: 048
     Dates: start: 20100706, end: 20100715
  18. MAGNESIUM SULFATE [Concomitant]
     Indication: CONSTIPATION
     Route: 048
     Dates: start: 20100704, end: 20110517
  19. PANITUMUMAB [Suspect]
     Indication: COLORECTAL CANCER
     Dosage: 6 MG/KG, Q2WK
     Route: 041
     Dates: start: 20100810, end: 20101104
  20. OXYCONTIN [Concomitant]
     Indication: PAIN
     Route: 048
     Dates: start: 20100701, end: 20100925

REACTIONS (4)
  - INTERSTITIAL LUNG DISEASE [None]
  - COLORECTAL CANCER [None]
  - HEPATIC FAILURE [None]
  - RASH [None]
